FAERS Safety Report 7323760-9 (Version None)
Quarter: 2011Q1

REPORT INFORMATION
  Report Type: 
  Country: None (occurrence: None)
  Receive Date: 20110301
  Receipt Date: 20110223
  Transmission Date: 20110831
  Serious: Yes (Other)
  Sender: FDA-Public Use
  Company Number: JP-PFIZER INC-2011038904

PATIENT
  Age: 32 Year
  Sex: Male

DRUGS (3)
  1. METHYLPREDNISOLONE SODIUM SUCCINATE [Suspect]
     Indication: HISTIOCYTIC NECROTISING LYMPHADENITIS
     Dosage: 250 MG/DAY FROM DAY 42 TO DAY 44 OF HOSPITALIZATION
  2. PREDNISOLONE [Concomitant]
     Dosage: UNK
  3. METHYLPREDNISOLONE SODIUM SUCCINATE [Suspect]

REACTIONS (1)
  - PULMONARY EMBOLISM [None]
